FAERS Safety Report 5082575-5 (Version None)
Quarter: 2006Q3

REPORT INFORMATION
  Report Type: 
  Country: None (occurrence: None)
  Receive Date: 20060817
  Receipt Date: 20060807
  Transmission Date: 20061208
  Serious: Yes (Hospitalization)
  Sender: FDA-Public Use
  Company Number: FR-BRISTOL-MYERS SQUIBB COMPANY-13468749

PATIENT
  Age: 78 Year
  Sex: Male

DRUGS (5)
  1. LOPRIL [Suspect]
     Route: 048
  2. LASILIX [Suspect]
  3. DIGOXIN [Concomitant]
  4. VASTAREL [Concomitant]
  5. ASPIRIN [Concomitant]

REACTIONS (1)
  - VASCULAR PURPURA [None]
